FAERS Safety Report 18901443 (Version 1)
Quarter: 2021Q1

REPORT INFORMATION
  Report Type: Spontaneous
  Country: NL (occurrence: NL)
  Receive Date: 20210217
  Receipt Date: 20210217
  Transmission Date: 20210420
  Serious: Yes (Hospitalization)
  Sender: FDA-Public Use
  Company Number: NL-TEVA-2021-NL-1880082

PATIENT
  Age: 68 Year
  Sex: Female
  Weight: 67 kg

DRUGS (12)
  1. OXAZEPAM TABLET 10MG / BRAND NAME NOT SPECIFIED [Concomitant]
     Active Substance: OXAZEPAM
     Dosage: 10 MG (MILLIGRAM),THERAPY START DATE :ASKU,THERAPY END DATE :ASKU
  2. FERROFUMARAAT TABLET 200MG / BRAND NAME NOT SPECIFIED [Concomitant]
     Active Substance: FERROUS FUMARATE
     Dosage: 200 MG (MILLIGRAM),THERAPY START DATE :ASKU,THERAPY END DATE :ASKU
  3. METHOTREXAAT TABLET 10MG / BRAND NAME NOT SPECIFIED [Suspect]
     Active Substance: METHOTREXATE
     Indication: RHEUMATOID ARTHRITIS
     Dosage: 1 X PER WEEK 1 TABLET
     Dates: start: 2008, end: 20210118
  4. SALMETEROL/FLUTICASON INHALATIEPOEDER 50/250UG/DO / BRAND NAME NOT SPE [Concomitant]
     Dosage: 50/250 UG / DOSE (MICROGRAMS PER DOSE),THERAPY START DATE :ASKU,THERAPY END DATE :ASKU
  5. FOLIUMZUUR TABLET 5MG / BRAND NAME NOT SPECIFIED [Concomitant]
     Dosage: 5 MG (MILLIGRAM),THERAPY START DATE :ASKU,THERAPY END DATE :ASKU
  6. LISINOPRIL TABLET 20MG / BRAND NAME NOT SPECIFIED [Concomitant]
     Dosage: 20 MG (MILLIGRAM),THERAPY START DATE :ASKU,THERAPY END DATE :ASKU
  7. ATORVASTATINE TABLET 40MG / BRAND NAME NOT SPECIFIED [Concomitant]
     Dosage: 40 MG (MILLIGRAM),THERAPY START DATE :ASKU,THERAPY END DATE :ASKU
  8. LERCANIDIPINE TABLET OMHULD 10MG / BRAND NAME NOT SPECIFIED [Concomitant]
     Active Substance: LERCANIDIPINE
     Dosage: 10 MG (MILLIGRAM),THERAPY START DATE :ASKU,THERAPY END DATE :ASKU
  9. OMEPRAZOL CAPSULE MSR 20MG / BRAND NAME NOT SPECIFIED [Concomitant]
     Active Substance: OMEPRAZOLE
     Dosage: 20 MG (MILLIGRAM),THERAPY START DATE :ASKU,THERAPY END DATE :ASKU
  10. DEXAMETHASON OOGDR 1MG/ML (DI?NA?FOSFAAT) / BRAND NAME NOT SPECIFIED [Concomitant]
     Dosage: 1 MG/ML (MILLIGRAM PER MILLILITER),THERAPY START DATE :ASKU,THERAPY END DATE :ASKU
  11. SALBUTAMOL AEROSOL 100UG/DO / BRAND NAME NOT SPECIFIED [Concomitant]
     Dosage: 100 UG / DOSE (MICROGRAMS PER DOSE),THERAPY START DATE :ASKU,THERAPY END DATE :ASKU
  12. TRIAMCINOLONACETONIDE ZALF 1MG/G / BRAND NAME NOT SPECIFIED [Concomitant]
     Dosage: 1 MG/G (MILLIGRAM PER GRAM),THERAPY START DATE :ASKU,THERAPY END DATE :ASKU

REACTIONS (1)
  - Diffuse large B-cell lymphoma [Not Recovered/Not Resolved]

NARRATIVE: CASE EVENT DATE: 20210113
